FAERS Safety Report 7348482-X (Version None)
Quarter: 2011Q1

REPORT INFORMATION
  Report Type: 
  Country: None (occurrence: None)
  Receive Date: 20110314
  Receipt Date: 20110302
  Transmission Date: 20110831
  Serious: Yes (Other)
  Sender: FDA-Public Use
  Company Number: NL-ASTRAZENECA-2011SE11571

PATIENT
  Sex: Female

DRUGS (1)
  1. ROSUVASTATINE [Suspect]
     Route: 048

REACTIONS (1)
  - POLLAKIURIA [None]
